FAERS Safety Report 25270619 (Version 1)
Quarter: 2025Q2

REPORT INFORMATION
  Report Type: Spontaneous
  Country: US (occurrence: US)
  Receive Date: 20250505
  Receipt Date: 20250505
  Transmission Date: 20250717
  Serious: Yes (Death, Other)
  Sender: SANOFI AVENTIS
  Company Number: US-SA-2025SA118855

PATIENT
  Age: 32 Year
  Sex: Male

DRUGS (10)
  1. DUPIXENT [Suspect]
     Active Substance: DUPILUMAB
     Indication: Nasal polyps
     Dosage: 300 MG, QOW
     Route: 058
     Dates: start: 202302
  2. TRAZODONE [Concomitant]
     Active Substance: TRAZODONE HYDROCHLORIDE
  3. METHADONE [Concomitant]
     Active Substance: METHADONE HYDROCHLORIDE
  4. LEVOFLOXACIN [Concomitant]
     Active Substance: LEVOFLOXACIN
  5. GABAPENTIN [Concomitant]
     Active Substance: GABAPENTIN
  6. OLANZAPINE [Concomitant]
     Active Substance: OLANZAPINE
  7. XHANCE [Concomitant]
     Active Substance: FLUTICASONE PROPIONATE
  8. MELATONIN [Concomitant]
     Active Substance: MELATONIN
  9. VALIUM [Concomitant]
     Active Substance: DIAZEPAM
  10. POTASSIUM CHLORIDE [Concomitant]
     Active Substance: POTASSIUM CHLORIDE

REACTIONS (3)
  - Death [Fatal]
  - Parosmia [Unknown]
  - Hypergeusia [Unknown]

NARRATIVE: CASE EVENT DATE: 20250403
